FAERS Safety Report 15188300 (Version 3)
Quarter: 2019Q1

REPORT INFORMATION
  Report Type: Spontaneous
  Country: US (occurrence: US)
  Receive Date: 20180724
  Receipt Date: 20190325
  Transmission Date: 20190417
  Serious: Yes (Death, Other)
  Sender: FDA-Public Use
  Company Number: US-ASTRAZENECA-2018SE92200

PATIENT
  Age: 889 Month
  Sex: Female
  Weight: 72.6 kg

DRUGS (36)
  1. HUMULIN NOS [Concomitant]
     Active Substance: INSULIN HUMAN
  2. TOPIRAMATE. [Concomitant]
     Active Substance: TOPIRAMATE
  3. PLAVIX [Concomitant]
     Active Substance: CLOPIDOGREL BISULFATE
  4. NOVOLOG [Concomitant]
     Active Substance: INSULIN ASPART
  5. ALPRAZOLAM. [Concomitant]
     Active Substance: ALPRAZOLAM
  6. LIDODERM [Concomitant]
     Active Substance: LIDOCAINE
  7. NEXIUM [Suspect]
     Active Substance: ESOMEPRAZOLE MAGNESIUM
     Route: 048
     Dates: start: 2009, end: 2016
  8. METHYLPREDNISOLONE. [Concomitant]
     Active Substance: METHYLPREDNISOLONE
  9. CIPROFLOXACIN HYDROCHLORIDE. [Concomitant]
     Active Substance: CIPROFLOXACIN HYDROCHLORIDE
  10. LODRANE D [Concomitant]
     Active Substance: BROMPHENIRAMINE MALEATE\PSEUDOEPHEDRINE HYDROCHLORIDE
  11. NEXIUM [Suspect]
     Active Substance: ESOMEPRAZOLE MAGNESIUM
     Dosage: 40.0MG UNKNOWN
     Route: 048
     Dates: start: 20110307, end: 20160418
  12. FUROSEMIDE. [Concomitant]
     Active Substance: FUROSEMIDE
  13. ISOSORBIDE. [Concomitant]
     Active Substance: ISOSORBIDE
  14. METHOCARBAMOL. [Concomitant]
     Active Substance: METHOCARBAMOL
  15. LYRICA [Concomitant]
     Active Substance: PREGABALIN
  16. NEXIUM [Suspect]
     Active Substance: ESOMEPRAZOLE MAGNESIUM
     Dosage: UNKNOWN
     Route: 048
     Dates: start: 201302, end: 201502
  17. ROLAIDS [Concomitant]
     Active Substance: CALCIUM CARBONATE\MAGNESIUM HYDROXIDE
  18. ATORVASTATIN [Concomitant]
     Active Substance: ATORVASTATIN
  19. CHOLECALCIFEROL [Concomitant]
     Active Substance: CHOLECALCIFEROL
  20. ASPIRIN. [Concomitant]
     Active Substance: ASPIRIN
  21. MONTELUKAST [Concomitant]
     Active Substance: MONTELUKAST SODIUM
  22. NITROGLYCERIN. [Concomitant]
     Active Substance: NITROGLYCERIN
  23. POTASSIUM CHLORIDE. [Concomitant]
     Active Substance: POTASSIUM CHLORIDE
  24. NEXIUM [Suspect]
     Active Substance: ESOMEPRAZOLE MAGNESIUM
     Dosage: GENERIC UNKNOWN
     Route: 048
     Dates: start: 201510, end: 201601
  25. LISINOPRIL. [Concomitant]
     Active Substance: LISINOPRIL
  26. LIPITOR [Concomitant]
     Active Substance: ATORVASTATIN CALCIUM
  27. NEXIUM [Suspect]
     Active Substance: ESOMEPRAZOLE MAGNESIUM
     Route: 048
     Dates: start: 200902, end: 201101
  28. NEXIUM [Suspect]
     Active Substance: ESOMEPRAZOLE MAGNESIUM
     Dosage: GENERIC UNKNOWN
     Route: 048
     Dates: start: 201603
  29. CIPROFLOXACIN. [Concomitant]
     Active Substance: CIPROFLOXACIN
  30. METHYLPHENIDATE HYDROCHLORIDE. [Concomitant]
     Active Substance: METHYLPHENIDATE HYDROCHLORIDE
  31. HYDROCODONE ACETAMINOP [Concomitant]
  32. LACTULOSE. [Concomitant]
     Active Substance: LACTULOSE
  33. TOPIRAMATE. [Concomitant]
     Active Substance: TOPIRAMATE
  34. ZANTAC [Concomitant]
     Active Substance: RANITIDINE HYDROCHLORIDE
  35. CLOPIDOGREL [Concomitant]
     Active Substance: CLOPIDOGREL BISULFATE
  36. ESCITALOPRAM [Concomitant]
     Active Substance: ESCITALOPRAM OXALATE

REACTIONS (4)
  - Chronic kidney disease [Not Recovered/Not Resolved]
  - Acute kidney injury [Not Recovered/Not Resolved]
  - Death [Fatal]
  - Nephrogenic anaemia [Not Recovered/Not Resolved]

NARRATIVE: CASE EVENT DATE: 201301
